FAERS Safety Report 24910366 (Version 2)
Quarter: 2025Q1

REPORT INFORMATION
  Report Type: Spontaneous
  Country: US (occurrence: US)
  Receive Date: 20250131
  Receipt Date: 20250131
  Transmission Date: 20250409
  Serious: Yes (Other)
  Sender: AMGEN
  Company Number: US-AMGEN-USASP2025015955

PATIENT
  Age: 28 Year
  Sex: Male

DRUGS (1)
  1. PREDNISONE [Suspect]
     Active Substance: PREDNISONE
     Indication: Skin ulcer
     Route: 065

REACTIONS (5)
  - Haemolysis [Unknown]
  - Segmented hyalinising vasculitis [Unknown]
  - Drug ineffective for unapproved indication [Unknown]
  - Skin ulcer [Unknown]
  - Off label use [Unknown]
